FAERS Safety Report 23426687 (Version 3)
Quarter: 2024Q1

REPORT INFORMATION
  Report Type: Other
  Country: US (occurrence: None)
  Receive Date: 20240122
  Receipt Date: 20240205
  Transmission Date: 20240410
  Serious: Yes (Hospitalization, Other)
  Sender: FDA-Public Use
  Company Number: US-ROCHE-3459343

PATIENT
  Age: 53 Year
  Sex: Male
  Weight: 95.34 kg

DRUGS (6)
  1. OCREVUS [Suspect]
     Active Substance: OCRELIZUMAB
     Indication: Relapsing-remitting multiple sclerosis
     Dosage: 300MG IV AND REPEAT IN 2 WEEKS AND THEN 600MG IV Q 6 MONTHS, DATE OF TREATMENT: 22/MAY/2023, 10/NOV/
     Route: 042
     Dates: start: 2020
  2. OCREVUS [Suspect]
     Active Substance: OCRELIZUMAB
     Indication: Progressive multiple sclerosis
  3. ERGOCALCIFEROL [Concomitant]
     Active Substance: ERGOCALCIFEROL
  4. CALCIUM [Concomitant]
     Active Substance: CALCIUM
  5. BACLOFEN [Concomitant]
     Active Substance: BACLOFEN
  6. MODAFINIL [Concomitant]
     Active Substance: MODAFINIL

REACTIONS (7)
  - Headache [Not Recovered/Not Resolved]
  - Asthenia [Not Recovered/Not Resolved]
  - Spinal operation [Recovered/Resolved]
  - Glucose tolerance impaired [Unknown]
  - Weight decreased [Unknown]
  - Macule [Not Recovered/Not Resolved]
  - Urinary tract infection [Recovered/Resolved]

NARRATIVE: CASE EVENT DATE: 20210101
